FAERS Safety Report 8832085 (Version 29)
Quarter: 2015Q4

REPORT INFORMATION
  Report Type: Report from Study
  Country: CA (occurrence: CA)
  Receive Date: 20121009
  Receipt Date: 20151007
  Transmission Date: 20160305
  Serious: Yes (Other)
  Sender: FDA-Public Use
  Company Number: CA-ROCHE-1110916

PATIENT
  Age: 46 Year
  Sex: Male
  Weight: 65 kg

DRUGS (15)
  1. ALENDRONATE [Concomitant]
     Active Substance: ALENDRONATE SODIUM
  2. ACTEMRA [Suspect]
     Active Substance: TOCILIZUMAB
     Indication: RHEUMATOID ARTHRITIS
     Route: 042
     Dates: start: 20120509
  3. ACTEMRA [Suspect]
     Active Substance: TOCILIZUMAB
     Dosage: INTERRUPTED
     Route: 042
     Dates: start: 20120926
  4. PROCETOFENE [Concomitant]
  5. ACTEMRA [Suspect]
     Active Substance: TOCILIZUMAB
     Route: 042
     Dates: start: 20140821
  6. SULFAZINE [Concomitant]
     Active Substance: SULFASALAZINE
  7. CITALOPRAM [Concomitant]
     Active Substance: CITALOPRAM HYDROBROMIDE
  8. ACTEMRA [Suspect]
     Active Substance: TOCILIZUMAB
     Route: 042
     Dates: start: 20130709
  9. ACTEMRA [Suspect]
     Active Substance: TOCILIZUMAB
     Route: 042
     Dates: start: 20150508
  10. ACTEMRA [Suspect]
     Active Substance: TOCILIZUMAB
     Route: 042
     Dates: start: 20131029
  11. CELEBREX [Concomitant]
     Active Substance: CELECOXIB
  12. CYCLOBENZAPRINE [Concomitant]
     Active Substance: CYCLOBENZAPRINE
  13. ACTEMRA [Suspect]
     Active Substance: TOCILIZUMAB
     Route: 042
     Dates: start: 20120705
  14. CALCITE [Concomitant]
     Active Substance: CALCIUM CARBONATE
  15. PREDNISONE. [Concomitant]
     Active Substance: PREDNISONE

REACTIONS (27)
  - Weight decreased [Unknown]
  - Carpal tunnel syndrome [Not Recovered/Not Resolved]
  - Herpes zoster [Recovering/Resolving]
  - Mass [Not Recovered/Not Resolved]
  - Gait disturbance [Not Recovered/Not Resolved]
  - Localised infection [Recovered/Resolved]
  - Rheumatoid arthritis [Unknown]
  - Laceration [Not Recovered/Not Resolved]
  - Fall [Unknown]
  - Weight fluctuation [Unknown]
  - Laceration [Recovering/Resolving]
  - Lower extremity mass [Not Recovered/Not Resolved]
  - Hypotension [Unknown]
  - Anger [Unknown]
  - Back pain [Not Recovered/Not Resolved]
  - Peripheral swelling [Not Recovered/Not Resolved]
  - Pain [Unknown]
  - Oxygen saturation decreased [Unknown]
  - Heart rate increased [Recovering/Resolving]
  - Influenza [Recovered/Resolved]
  - Tooth disorder [Unknown]
  - Hypoaesthesia [Not Recovered/Not Resolved]
  - Pain in extremity [Not Recovered/Not Resolved]
  - Myalgia [Not Recovered/Not Resolved]
  - Arthralgia [Not Recovered/Not Resolved]
  - Arthralgia [Not Recovered/Not Resolved]
  - Wound infection [Not Recovered/Not Resolved]

NARRATIVE: CASE EVENT DATE: 20120822
